FAERS Safety Report 16658979 (Version 1)
Quarter: 2019Q3

REPORT INFORMATION
  Report Type: Spontaneous
  Country: US (occurrence: US)
  Receive Date: 20190801
  Receipt Date: 20190801
  Transmission Date: 20191004
  Serious: No
  Sender: FDA-Public Use
  Company Number: US-AMGEN INC.-USASP2019120420

PATIENT

DRUGS (1)
  1. AIMOVIG [Suspect]
     Active Substance: ERENUMAB-AOOE
     Indication: MIGRAINE
     Dosage: 140 MILLIGRAM
     Route: 065

REACTIONS (6)
  - Fatigue [Unknown]
  - Throat tightness [Unknown]
  - Chest discomfort [Unknown]
  - Insomnia [Unknown]
  - Tension headache [Unknown]
  - Ear discomfort [Unknown]
